FAERS Safety Report 15151154 (Version 1)
Quarter: 2018Q3

REPORT INFORMATION
  Report Type: Spontaneous
  Country: BR (occurrence: BR)
  Receive Date: 20180716
  Receipt Date: 20180716
  Transmission Date: 20181010
  Serious: Yes (Other)
  Sender: FDA-Public Use
  Company Number: BR-MYLANLABS-2018M1051582

PATIENT
  Age: 75 Year
  Sex: Male

DRUGS (2)
  1. FENTANYL. [Suspect]
     Active Substance: FENTANYL
     Indication: SEDATION
     Dosage: UNK
  2. MIDAZOLAM [Suspect]
     Active Substance: MIDAZOLAM HYDROCHLORIDE
     Indication: SEDATION
     Dosage: UNK

REACTIONS (6)
  - Amaurosis [Recovered/Resolved]
  - Visual impairment [Recovered/Resolved]
  - Akinesia [Unknown]
  - Paralysis [Unknown]
  - Eyelid ptosis [Recovered/Resolved]
  - Pupillary reflex impaired [Recovered/Resolved]
